FAERS Safety Report 24771025 (Version 1)
Quarter: 2024Q4

REPORT INFORMATION
  Report Type: Spontaneous
  Country: CZ (occurrence: CZ)
  Receive Date: 20241224
  Receipt Date: 20241224
  Transmission Date: 20250115
  Serious: Yes (Hospitalization, Other)
  Sender: BIOVITRUM
  Company Number: None

PATIENT
  Age: 12 Year
  Sex: Male
  Weight: 41 kg

DRUGS (3)
  1. KINERET [Suspect]
     Active Substance: ANAKINRA
     Indication: Still^s disease
     Dosage: 1 INJECTION SUBCUTANEOUSLY ONCE A DAY, NOW AT 16:30
     Route: 058
     Dates: start: 20241121, end: 20241203
  2. KINERET [Suspect]
     Active Substance: ANAKINRA
     Indication: Still^s disease
  3. IBUPROFEN [Concomitant]
     Active Substance: IBUPROFEN
     Indication: Product used for unknown indication
     Dosage: GRADUALLY DISCONTINUED, 28. - 29.11. 2 TIMES A DAY (MORNING, EVENING), 30.11. - 1.12. 1 TIME A DAY I
     Dates: start: 20241128, end: 20241201

REACTIONS (3)
  - Rash maculo-papular [Recovering/Resolving]
  - Erythema [Recovering/Resolving]
  - Rash pruritic [Recovering/Resolving]

NARRATIVE: CASE EVENT DATE: 20241130
